FAERS Safety Report 25442887 (Version 1)
Quarter: 2025Q2

REPORT INFORMATION
  Report Type: Spontaneous
  Country: US (occurrence: US)
  Receive Date: 20250617
  Receipt Date: 20250617
  Transmission Date: 20250717
  Serious: No
  Sender: CSL BEHRING
  Company Number: US-BEH-2025209069

PATIENT
  Age: 71 Year
  Sex: Male
  Weight: 97.3 kg

DRUGS (1)
  1. HIZENTRA [Suspect]
     Active Substance: HUMAN IMMUNOGLOBULIN G
     Indication: Chemotherapy
     Route: 065

REACTIONS (2)
  - Infusion site erythema [Recovered/Resolved]
  - Product use in unapproved indication [Unknown]
